FAERS Safety Report 4377215-4 (Version None)
Quarter: 2004Q2

REPORT INFORMATION
  Report Type: 
  Country: None (occurrence: None)
  Receive Date: 20040609
  Receipt Date: 20040217
  Transmission Date: 20050107
  Serious: No
  Sender: FDA-Public Use
  Company Number: 2004199793US

PATIENT
  Age: 79 Year
  Sex: Female

DRUGS (3)
  1. BEXTRA [Suspect]
     Indication: OSTEOARTHRITIS
     Dosage: 10 MG, QD
     Dates: start: 20040101
  2. ATENOLOL [Concomitant]
  3. ASPIRIN [Concomitant]

REACTIONS (2)
  - FEELING OF RELAXATION [None]
  - SOMNOLENCE [None]
